FAERS Safety Report 7416233-6 (Version None)
Quarter: 2011Q2

REPORT INFORMATION
  Report Type: 
  Country: None (occurrence: None)
  Receive Date: 20110414
  Receipt Date: 20110411
  Transmission Date: 20111010
  Serious: Yes (Other)
  Sender: FDA-Public Use
  Company Number: US-ABBOTT-11P-163-0718524-00

PATIENT
  Sex: Female
  Weight: 63.56 kg

DRUGS (30)
  1. INDERAL [Concomitant]
     Indication: PALPITATIONS
  2. LASIX [Concomitant]
     Indication: HYPERTENSION
  3. POTASSIUM CHLORIDE [Concomitant]
     Indication: PRODUCT USED FOR UNKNOWN INDICATION
  4. PLAQUENIL [Concomitant]
     Indication: FIBROMYALGIA
  5. COMPAZINE [Concomitant]
     Indication: NAUSEA
  6. ZYDONE [Concomitant]
     Indication: PAIN
  7. FLONASE [Concomitant]
     Indication: ASTHMA
  8. DULCOLAX [Concomitant]
     Indication: CONSTIPATION
  9. MIRAPEX [Concomitant]
     Indication: MOBILITY DECREASED
     Dosage: 3/4 TABLETS; 1 IN 1 DAY
  10. PREDNISONE [Concomitant]
     Indication: SPINAL COLUMN STENOSIS
  11. PREMARIN [Concomitant]
     Indication: HORMONE REPLACEMENT THERAPY
  12. VITAMIN D [Concomitant]
     Indication: VITAMIN D DEFICIENCY
     Route: 048
  13. CONJUGATED LINOLEIC ACID [Concomitant]
     Indication: MUSCLE SPASMS
  14. FOLIC ACID [Concomitant]
     Indication: PRODUCT USED FOR UNKNOWN INDICATION
  15. MORPHINE [Concomitant]
     Indication: PAIN
  16. KLONOPIN [Concomitant]
     Indication: DEPRESSION
     Dosage: AT BEDTIME
  17. PROAIR HFA [Concomitant]
     Indication: WHEEZING
  18. CONJUGATED LINOLEIC ACID [Concomitant]
     Indication: PAIN
  19. CARBS SMART [Concomitant]
     Indication: VITAMIN SUPPLEMENTATION
  20. CYMBALTA [Concomitant]
     Indication: DEPRESSION
  21. PLAQUENIL [Concomitant]
     Indication: RHEUMATOID ARTHRITIS
  22. ASTELIN [Concomitant]
     Indication: ASTHMA
  23. METHOTREXATE [Concomitant]
     Indication: RHEUMATOID ARTHRITIS
  24. PROAIR HFA [Concomitant]
     Indication: ASTHMA
     Dosage: 2 INHALATIONS; AS REQUIRED
  25. PREDNISONE [Concomitant]
     Indication: ARTHRITIS
  26. CONJUGATED LINOLEIC ACID [Concomitant]
     Indication: DIABETES MELLITUS
  27. HUMIRA [Suspect]
     Indication: RHEUMATOID ARTHRITIS
     Dates: start: 20100101
  28. TIZANIDINE [Suspect]
     Indication: MUSCLE SPASMS
     Dates: start: 20100101, end: 20100101
  29. TRAZODONE [Concomitant]
     Indication: DEPRESSION
     Dosage: AT BEDTIME
  30. PREVACID [Concomitant]
     Indication: PROPHYLAXIS AGAINST GASTROINTESTINAL ULCER

REACTIONS (5)
  - MUSCLE TWITCHING [None]
  - TONGUE SPASM [None]
  - DYSPHAGIA [None]
  - SPINAL OSTEOARTHRITIS [None]
  - MUSCLE SPASMS [None]
